FAERS Safety Report 23781047 (Version 1)
Quarter: 2024Q2

REPORT INFORMATION
  Report Type: Spontaneous
  Country: US (occurrence: US)
  Receive Date: 20240425
  Receipt Date: 20240425
  Transmission Date: 20240715
  Serious: No
  Sender: FDA-Public Use
  Company Number: US-HALEON-2169903

PATIENT
  Age: 18 Month
  Sex: Male
  Weight: 10.4 kg

DRUGS (1)
  1. DIMETAPP [Suspect]
     Active Substance: BROMPHENIRAMINE\PSEUDOEPHEDRINE
     Indication: Analgesic therapy
     Dosage: EXPDATE:202609
     Route: 048
     Dates: start: 20240101, end: 20240418

REACTIONS (4)
  - Accidental exposure to product [Unknown]
  - Off label use [Unknown]
  - Failure of child resistant product closure [Unknown]
  - Product use issue [Unknown]

NARRATIVE: CASE EVENT DATE: 20240101
